FAERS Safety Report 17718980 (Version 1)
Quarter: 2020Q2

REPORT INFORMATION
  Report Type: Spontaneous
  Country: CN (occurrence: CN)
  Receive Date: 20200428
  Receipt Date: 20200428
  Transmission Date: 20200714
  Serious: Yes (Hospitalization, Other)
  Sender: FDA-Public Use
  Company Number: CN-ASTRAZENECA-2020SE54957

PATIENT
  Age: 18628 Day
  Sex: Female
  Weight: 52 kg

DRUGS (4)
  1. OLAPARIB. [Suspect]
     Active Substance: OLAPARIB
     Indication: TUMOUR ABLATION
     Route: 048
     Dates: start: 20200226, end: 20200403
  2. OLAPARIB. [Suspect]
     Active Substance: OLAPARIB
     Indication: MALIGNANT OVARIAN CYST
     Route: 048
     Dates: start: 20200226, end: 20200403
  3. OLAPARIB. [Suspect]
     Active Substance: OLAPARIB
     Indication: MALIGNANT OVARIAN CYST
     Route: 048
     Dates: end: 20200404
  4. OLAPARIB. [Suspect]
     Active Substance: OLAPARIB
     Indication: TUMOUR ABLATION
     Route: 048
     Dates: end: 20200404

REACTIONS (6)
  - Bone marrow failure [Recovered/Resolved]
  - Fatigue [Recovered/Resolved]
  - Anaemia [Recovered/Resolved]
  - Dizziness [Recovered/Resolved]
  - Decreased appetite [Recovered/Resolved]
  - Leukopenia [Recovered/Resolved]

NARRATIVE: CASE EVENT DATE: 20200403
